FAERS Safety Report 17702219 (Version 1)
Quarter: 2020Q2

REPORT INFORMATION
  Report Type: Spontaneous
  Country: US (occurrence: US)
  Receive Date: 20200423
  Receipt Date: 20200423
  Transmission Date: 20200714
  Serious: No
  Sender: FDA-Public Use
  Company Number: US-ABBVIE-20K-163-3262063-00

PATIENT
  Sex: Female

DRUGS (1)
  1. ORILISSA [Suspect]
     Active Substance: ELAGOLIX SODIUM
     Indication: PRODUCT USED FOR UNKNOWN INDICATION
     Dosage: 200MG TWICE A DAY
     Route: 048
     Dates: start: 201909

REACTIONS (3)
  - Pain [Not Recovered/Not Resolved]
  - Hot flush [Unknown]
  - Therapeutic product effect incomplete [Not Recovered/Not Resolved]
